FAERS Safety Report 20936077 (Version 1)
Quarter: 2022Q2

REPORT INFORMATION
  Report Type: Spontaneous
  Country: US (occurrence: None)
  Receive Date: 20220609
  Receipt Date: 20220609
  Transmission Date: 20220720
  Serious: No
  Sender: FDA-Public Use
  Company Number: US-ROCHE-2847328

PATIENT
  Age: 67 Year
  Sex: Female
  Weight: 56.296 kg

DRUGS (11)
  1. ACTEMRA [Suspect]
     Active Substance: TOCILIZUMAB
     Indication: Product used for unknown indication
     Dosage: 162MG/0.9ML
     Route: 058
     Dates: start: 202101
  2. ACTEMRA [Suspect]
     Active Substance: TOCILIZUMAB
  3. ACTEMRA [Suspect]
     Active Substance: TOCILIZUMAB
     Route: 058
     Dates: start: 202012
  4. ACTEMRA [Suspect]
     Active Substance: TOCILIZUMAB
  5. PREDNISONE [Concomitant]
     Active Substance: PREDNISONE
     Indication: Giant cell arteritis
     Route: 048
     Dates: start: 202011, end: 20210627
  6. VITAMINS [Concomitant]
     Active Substance: VITAMINS
     Dosage: 1 PILL DAILY
     Route: 048
  7. VIVISCAL TABLET [Concomitant]
     Dosage: 1 PILL DAILY
     Route: 048
  8. VITAMIN D3 [Concomitant]
     Active Substance: CHOLECALCIFEROL
     Dates: start: 202101
  9. CALCIUM [Concomitant]
     Active Substance: CALCIUM
     Route: 048
     Dates: start: 202101
  10. VAGIFEM [Concomitant]
     Active Substance: ESTRADIOL
     Route: 067
  11. DIAZOXIDE [Concomitant]
     Active Substance: DIAZOXIDE
     Indication: Meniere^s disease
     Dosage: 37.5/25 PILL
     Route: 048

REACTIONS (6)
  - Rash [Recovering/Resolving]
  - Pruritus [Recovering/Resolving]
  - Sensitive skin [Not Recovered/Not Resolved]
  - Swelling [Not Recovered/Not Resolved]
  - Device malfunction [Unknown]
  - Device defective [Unknown]

NARRATIVE: CASE EVENT DATE: 20210101
